FAERS Safety Report 9838808 (Version 1)
Quarter: 2014Q1

REPORT INFORMATION
  Report Type: Spontaneous
  Country: US (occurrence: US)
  Receive Date: 20140123
  Receipt Date: 20140123
  Transmission Date: 20141002
  Serious: No
  Sender: FDA-Public Use
  Company Number: US-009507513-1401USA010688

PATIENT
  Age: 81 Year
  Sex: Female
  Weight: 86.17 kg

DRUGS (1)
  1. OXYTROL FOR WOMEN [Suspect]
     Indication: INCONTINENCE
     Dosage: UNK UNK, Q4D
     Dates: start: 20131101, end: 20131118

REACTIONS (1)
  - Drug ineffective [Unknown]
